FAERS Safety Report 5098279-9 (Version None)
Quarter: 2006Q3

REPORT INFORMATION
  Report Type: 
  Country: None (occurrence: None)
  Receive Date: 20060906
  Receipt Date: 20060619
  Transmission Date: 20061208
  Serious: No
  Sender: FDA-Public Use
  Company Number: US-GLAXOSMITHKLINE-A0609835A

PATIENT
  Age: 77 Year
  Sex: Male

DRUGS (1)
  1. REQUIP [Suspect]
     Dosage: 1MG TWICE PER DAY
     Route: 048
     Dates: start: 20050101

REACTIONS (4)
  - FORMICATION [None]
  - MUSCLE SPASMS [None]
  - RESTLESS LEGS SYNDROME [None]
  - SKIN IRRITATION [None]
